FAERS Safety Report 10419730 (Version 3)
Quarter: 2015Q4

REPORT INFORMATION
  Report Type: Report from Study
  Country: AR (occurrence: AR)
  Receive Date: 20140829
  Receipt Date: 20151112
  Transmission Date: 20160304
  Serious: Yes (Hospitalization, Other)
  Sender: FDA-Public Use
  Company Number: AR-BRISTOL-MYERS SQUIBB COMPANY-21343009

PATIENT
  Age: 87 Year
  Sex: Male

DRUGS (1)
  1. ABATACEPT [Suspect]
     Active Substance: ABATACEPT
     Indication: RHEUMATOID ARTHRITIS
     Dosage: RESUMED
     Route: 042
     Dates: start: 20140404

REACTIONS (2)
  - Diabetes mellitus [Recovering/Resolving]
  - Subdural haematoma [Unknown]

NARRATIVE: CASE EVENT DATE: 2014
